FAERS Safety Report 14636334 (Version 8)
Quarter: 2018Q2

REPORT INFORMATION
  Report Type: Report from Study
  Country: CA (occurrence: CA)
  Receive Date: 20180314
  Receipt Date: 20180521
  Transmission Date: 20180711
  Serious: Yes (Hospitalization)
  Sender: FDA-Public Use
  Company Number: PHHY2017CA156729

PATIENT
  Age: 73 Year
  Sex: Female

DRUGS (7)
  1. RUP AL [Concomitant]
     Indication: PRODUCT USED FOR UNKNOWN INDICATION
     Dosage: 10 MG, BID
     Route: 065
  2. RANITIDINE. [Concomitant]
     Active Substance: RANITIDINE
     Indication: PRODUCT USED FOR UNKNOWN INDICATION
     Dosage: 150 MG, BID
     Route: 065
  3. ZANTAC [Concomitant]
     Active Substance: RANITIDINE HYDROCHLORIDE
     Indication: PRODUCT USED FOR UNKNOWN INDICATION
     Dosage: 150 MG, BID
     Route: 065
     Dates: start: 201608
  4. XOLAIR [Suspect]
     Active Substance: OMALIZUMAB
     Indication: CHRONIC SPONTANEOUS URTICARIA
     Dosage: 300 MG, 4 WEEKS
     Route: 058
     Dates: start: 20170915
  5. MONTELUKAST SODIUM. [Suspect]
     Active Substance: MONTELUKAST SODIUM
     Indication: PRODUCT USED FOR UNKNOWN INDICATION
     Dosage: 10 MG, QD
     Route: 065
     Dates: start: 201608
  6. XOLAIR [Suspect]
     Active Substance: OMALIZUMAB
     Dosage: UNK
     Route: 058
     Dates: start: 20171013
  7. XOLAIR [Suspect]
     Active Substance: OMALIZUMAB
     Dosage: 300 MG, EVERY 4 WEEKS
     Route: 058
     Dates: start: 20180202

REACTIONS (22)
  - Back pain [Unknown]
  - Limb discomfort [Unknown]
  - Coccydynia [Not Recovered/Not Resolved]
  - Palmar erythema [Unknown]
  - Urticaria [Unknown]
  - Pruritus [Unknown]
  - Cyanosis [Unknown]
  - Arthralgia [Unknown]
  - Feeling abnormal [Recovering/Resolving]
  - Aphonia [Unknown]
  - Pain in extremity [Unknown]
  - Urticaria [Recovered/Resolved]
  - Pruritus [Recovered/Resolved]
  - Pain [Unknown]
  - Peripheral coldness [Unknown]
  - Peripheral swelling [Not Recovered/Not Resolved]
  - Generalised erythema [Unknown]
  - Intervertebral disc protrusion [Unknown]
  - Musculoskeletal pain [Unknown]
  - Mobility decreased [Not Recovered/Not Resolved]
  - Musculoskeletal discomfort [Unknown]
  - Nervous system disorder [Unknown]

NARRATIVE: CASE EVENT DATE: 201801
